FAERS Safety Report 8896298 (Version 2)
Quarter: 2012Q4

REPORT INFORMATION
  Report Type: 
  Country: US (occurrence: None)
  Receive Date: 20121106
  Receipt Date: 20121106
  Transmission Date: 20130627
  Serious: Yes (Hospitalization)
  Sender: FDA-Public Use
  Company Number: None

PATIENT
  Sex: Male
  Weight: 68.94 kg

DRUGS (1)
  1. CISPLATIN [Suspect]

REACTIONS (6)
  - Fatigue [None]
  - Dehydration [None]
  - Asthenia [None]
  - Malaise [None]
  - Urinary tract infection [None]
  - Klebsiella infection [None]
